FAERS Safety Report 7698767-2 (Version None)
Quarter: 2011Q3

REPORT INFORMATION
  Report Type: 
  Country: None (occurrence: None)
  Receive Date: 20110819
  Receipt Date: 20110816
  Transmission Date: 20111222
  Serious: Yes (Hospitalization, Other)
  Sender: FDA-Public Use
  Company Number: US-PFIZER INC-2011154551

PATIENT
  Sex: Female
  Weight: 123.36 kg

DRUGS (15)
  1. GEODON [Suspect]
     Indication: BIPOLAR DISORDER
     Dosage: 20 MG, 2X/DAY
     Route: 048
     Dates: start: 20110101
  2. LISINOPRIL [Concomitant]
     Dosage: 10 MG, DAILY
     Route: 048
  3. SEROQUEL [Suspect]
     Indication: BIPOLAR DISORDER
     Dosage: 400 MG, DAILY
     Route: 048
     Dates: start: 20110501, end: 20110101
  4. OMEPRAZOLE [Concomitant]
     Dosage: 40 MG, 2X/DAY
     Route: 048
  5. FLUOXETINE [Suspect]
     Indication: DEPRESSION
  6. LOVASTATIN [Concomitant]
     Dosage: 20 MG, DAILY
     Route: 048
  7. LEVOTHROID [Concomitant]
     Dosage: 150 MG, DAILY
     Route: 048
  8. LYRICA [Suspect]
     Dosage: 300 MG, 2X/DAY
     Route: 048
  9. TRANXENE [Concomitant]
     Indication: ANXIETY
     Dosage: 50 MG, 2X/DAY
     Route: 048
     Dates: start: 20110601
  10. FLUOXETINE [Suspect]
     Indication: BIPOLAR DISORDER
     Dosage: 40 MG, DAILY
     Dates: start: 20110501, end: 20110101
  11. LYRICA [Suspect]
     Indication: FIBROMYALGIA
     Dosage: 300 MG, 3X/DAY
     Route: 048
  12. SEROQUEL [Suspect]
     Indication: DEPRESSION
  13. ETODOLAC [Concomitant]
     Dosage: 4400 MG, 2X/DAY
     Route: 048
  14. LUNESTA [Concomitant]
     Dosage: 3 MG, DAILY
     Route: 048
  15. GEODON [Suspect]
     Indication: DEPRESSION

REACTIONS (4)
  - DRUG HYPERSENSITIVITY [None]
  - SUICIDAL IDEATION [None]
  - HERNIA REPAIR [None]
  - MAJOR DEPRESSION [None]
